FAERS Safety Report 7323264-3 (Version None)
Quarter: 2011Q1

REPORT INFORMATION
  Report Type: 
  Country: None (occurrence: None)
  Receive Date: 20110301
  Receipt Date: 20110224
  Transmission Date: 20110831
  Serious: Yes (Hospitalization)
  Sender: FDA-Public Use
  Company Number: CH-PFIZER INC-2011040084

PATIENT
  Age: 89 Year
  Sex: Female

DRUGS (5)
  1. TORASEM [Concomitant]
     Dosage: 5 MG, 1X/DAY
     Route: 048
  2. ARICEPT [Concomitant]
     Dosage: 1 DF, 1X/DAY
     Route: 048
  3. XANAX [Suspect]
     Dosage: 10 MG, SINGLE
     Route: 048
     Dates: start: 20110209, end: 20110209
  4. EUTHYROX [Concomitant]
     Dosage: 100 MG, 5 TIMES PER WEEK
  5. ENALAPRIL MALEATE [Concomitant]
     Dosage: 10 MG, 2X/DAY
     Route: 048

REACTIONS (3)
  - DRUG ABUSE [None]
  - TOXICITY TO VARIOUS AGENTS [None]
  - SOMNOLENCE [None]
